FAERS Safety Report 5303028-2 (Version None)
Quarter: 2007Q2

REPORT INFORMATION
  Report Type: 
  Country: None (occurrence: None)
  Receive Date: 20070413
  Receipt Date: 20070328
  Transmission Date: 20071010
  Serious: Yes (Other)
  Sender: FDA-Public Use
  Company Number: PHEH2007US03693

PATIENT
  Sex: Male

DRUGS (2)
  1. VISUDYNE [Suspect]
     Dates: start: 20070326, end: 20070326
  2. LUCENTIS [Suspect]
     Dates: start: 20070322, end: 20070322

REACTIONS (3)
  - BLINDNESS [None]
  - CHOROIDAL EFFUSION [None]
  - RETINAL OEDEMA [None]
